FAERS Safety Report 8239836-8 (Version None)
Quarter: 2012Q1

REPORT INFORMATION
  Report Type: 
  Country: None (occurrence: None)
  Receive Date: 20120327
  Receipt Date: 20120327
  Transmission Date: 20120608
  Serious: Yes (Other)
  Sender: FDA-Public Use
  Company Number: None

PATIENT

DRUGS (2)
  1. CETYLPYRIDINIUM CHLORIDE [Suspect]
  2. CETYLPYRIDINIUM CHLORIDE .07% CREST PRO HEALTH MOUTHWASH [Suspect]
     Indication: DENTAL DISORDER PROPHYLAXIS
     Dosage: 20 ML 1/DAY DENTAL
     Route: 004
     Dates: start: 20120120, end: 20120228

REACTIONS (1)
  - TOOTH DISCOLOURATION [None]
